FAERS Safety Report 14225954 (Version 1)
Quarter: 2017Q4

REPORT INFORMATION
  Report Type: Spontaneous
  Country: US (occurrence: US)
  Receive Date: 20171127
  Receipt Date: 20171127
  Transmission Date: 20180321
  Serious: No
  Sender: FDA-Public Use
  Company Number: US-TEVA-801351ACC

PATIENT

DRUGS (4)
  1. BUPROPION EXTENDED RELEASE XL [Suspect]
     Active Substance: BUPROPION
     Dosage: DOSE: 150XL
     Route: 065
  2. BUPROPION EXTENDED RELEASE XL [Suspect]
     Active Substance: BUPROPION
     Indication: LETHARGY
     Dosage: DOSE: 100MG
     Dates: start: 201402
  3. ABILIFY [Concomitant]
     Active Substance: ARIPIPRAZOLE
  4. BUPROPION EXTENDED RELEASE XL [Suspect]
     Active Substance: BUPROPION
     Indication: DEPRESSION
     Dosage: DOSE: 300XL

REACTIONS (3)
  - Adverse event [Unknown]
  - Drug ineffective [Unknown]
  - Product substitution issue [Unknown]
